FAERS Safety Report 12931513 (Version 1)
Quarter: 2016Q4

REPORT INFORMATION
  Report Type: Spontaneous
  Country: GB (occurrence: GB)
  Receive Date: 20161110
  Receipt Date: 20161110
  Transmission Date: 20170207
  Serious: Yes (Death, Other)
  Sender: FDA-Public Use
  Company Number: GB-GILEAD-2016-0242119

PATIENT
  Age: 57 Year
  Sex: Female

DRUGS (4)
  1. TRIUMEQ [Suspect]
     Active Substance: ABACAVIR SULFATE\DOLUTEGRAVIR SODIUM\LAMIVUDINE
     Indication: HIV INFECTION
     Dosage: UNK
     Route: 065
     Dates: start: 20160827
  2. DARUNAVIR [Suspect]
     Active Substance: DARUNAVIR
     Indication: PRODUCT USED FOR UNKNOWN INDICATION
     Route: 065
  3. TRUVADA [Suspect]
     Active Substance: EMTRICITABINE\TENOFOVIR DISOPROXIL FUMARATE
     Indication: PRODUCT USED FOR UNKNOWN INDICATION
     Route: 065
  4. RITONAVIR. [Suspect]
     Active Substance: RITONAVIR
     Indication: PRODUCT USED FOR UNKNOWN INDICATION
     Route: 065

REACTIONS (13)
  - Liver injury [Unknown]
  - Death [Fatal]
  - Hepatic encephalopathy [Unknown]
  - Multiple organ dysfunction syndrome [Unknown]
  - Liver disorder [Unknown]
  - Renal impairment [Unknown]
  - Malaise [Unknown]
  - Liver function test abnormal [Unknown]
  - Acute on chronic liver failure [Unknown]
  - Drug-induced liver injury [Unknown]
  - Condition aggravated [Unknown]
  - Portal vein thrombosis [Unknown]
  - Gastrointestinal haemorrhage [Unknown]
